FAERS Safety Report 21915637 (Version 1)
Quarter: 2023Q1

REPORT INFORMATION
  Report Type: Spontaneous
  Country: US (occurrence: None)
  Receive Date: 20230125
  Receipt Date: 20230125
  Transmission Date: 20230417
  Serious: Yes (Other)
  Sender: FDA-Public Use
  Company Number: None

PATIENT
  Age: 34 Year
  Sex: Male
  Weight: 87 kg

DRUGS (1)
  1. HYSINGLA ER [Suspect]
     Active Substance: HYDROCODONE BITARTRATE
     Indication: Pain
     Dosage: OTHER QUANTITY : 40 TABLET(S);?FREQUENCY : DAILY;?
     Route: 048
     Dates: start: 20230120, end: 20230125

REACTIONS (2)
  - Inadequate analgesia [None]
  - Nausea [None]

NARRATIVE: CASE EVENT DATE: 20230125
